FAERS Safety Report 7734955-4 (Version None)
Quarter: 2011Q3

REPORT INFORMATION
  Report Type: 
  Country: None (occurrence: None)
  Receive Date: 20110907
  Receipt Date: 20110829
  Transmission Date: 20111222
  Serious: Yes (Death, Hospitalization)
  Sender: FDA-Public Use
  Company Number: ES-CUBIST-2011S1000565

PATIENT
  Age: 70 Year
  Sex: Female

DRUGS (6)
  1. MICAFUNGIN [Concomitant]
     Indication: PRODUCT USED FOR UNKNOWN INDICATION
     Dosage: DOSE UNIT:U UNKNOWN
     Route: 065
     Dates: start: 20110317, end: 20110327
  2. AMIKACIN [Suspect]
     Route: 042
     Dates: start: 20110706
  3. AMIKACIN [Suspect]
     Indication: ABDOMINAL SEPSIS
     Dosage: DOSE UNIT:U UNKNOWN
     Route: 065
     Dates: start: 20110317, end: 20110330
  4. ALL OTHER THERAPEUTIC PRODUCTS [Concomitant]
     Indication: PRODUCT USED FOR UNKNOWN INDICATION
     Dosage: DOSE UNIT:U UNKNOWN
     Route: 065
     Dates: start: 20110317, end: 20110317
  5. CUBICIN [Suspect]
     Indication: ABDOMINAL SEPSIS
     Route: 042
     Dates: start: 20110703
  6. MEROPENEM [Suspect]
     Indication: ABDOMINAL SEPSIS
     Dates: start: 20110706

REACTIONS (1)
  - THROMBOCYTOPENIA [None]
